FAERS Safety Report 17337863 (Version 2)
Quarter: 2020Q1

REPORT INFORMATION
  Report Type: Spontaneous
  Country: US (occurrence: US)
  Receive Date: 20200129
  Receipt Date: 20200217
  Transmission Date: 20200409
  Serious: Yes (Hospitalization, Other)
  Sender: FDA-Public Use
  Company Number: US-ASTRAZENECA-2020SE11422

PATIENT
  Age: 10 Month
  Sex: Female
  Weight: 7.7 kg

DRUGS (3)
  1. ALBNTENOL [Concomitant]
     Route: 065
  2. PULMICORT TURBUHALER [Concomitant]
     Active Substance: BUDESONIDE
     Dosage: 0.25/ 2 MG TWICE DAILY
     Route: 055
  3. SYNAGIS [Suspect]
     Active Substance: PALIVIZUMAB
     Indication: ANTIVIRAL PROPHYLAXIS
     Dosage: UNKNOWN
     Route: 030

REACTIONS (3)
  - Respiratory failure [Unknown]
  - Respiratory syncytial virus bronchiolitis [Unknown]
  - Respiratory distress [Unknown]

NARRATIVE: CASE EVENT DATE: 20200112
